FAERS Safety Report 5202267-9 (Version None)
Quarter: 2007Q1

REPORT INFORMATION
  Report Type: 
  Country: None (occurrence: None)
  Receive Date: 20070109
  Receipt Date: 20070108
  Transmission Date: 20070707
  Serious: Yes (Hospitalization)
  Sender: FDA-Public Use
  Company Number: JP-JPN-A200603549

PATIENT
  Age: 89 Year
  Sex: Female

DRUGS (13)
  1. VALTREX [Suspect]
     Indication: HERPES ZOSTER
     Dosage: 1000MG THREE TIMES PER DAY
     Route: 048
     Dates: start: 20060828, end: 20060902
  2. THYRADIN [Concomitant]
     Route: 048
  3. ZANTAC [Concomitant]
     Route: 048
  4. MEVALOTIN [Concomitant]
     Route: 048
  5. RYTHMODAN [Concomitant]
     Route: 048
  6. ALLOPURINOL [Concomitant]
     Route: 048
     Dates: end: 20060902
  7. UNKNOWN NAME [Concomitant]
     Route: 048
  8. NITOROL R [Concomitant]
     Route: 048
  9. MUCOSOLVAN [Concomitant]
     Route: 048
  10. UNKNOWN NAME [Concomitant]
     Route: 048
  11. NOVORAPID [Concomitant]
     Route: 058
  12. CYANOCOBALAMIN [Concomitant]
     Route: 048
  13. PREDNISOLONE [Concomitant]
     Dosage: 10MG PER DAY
     Route: 065

REACTIONS (9)
  - BLOOD CREATININE INCREASED [None]
  - BLOOD POTASSIUM ABNORMAL [None]
  - BLOOD UREA ABNORMAL [None]
  - BLOOD URIC ACID ABNORMAL [None]
  - COGNITIVE DISORDER [None]
  - CONVULSION [None]
  - RENAL IMPAIRMENT [None]
  - RESTLESSNESS [None]
  - TOXIC INDUCED ENCEPHALOPATHY [None]
